FAERS Safety Report 7701260-1 (Version None)
Quarter: 2011Q3

REPORT INFORMATION
  Report Type: 
  Country: None (occurrence: None)
  Receive Date: 20110822
  Receipt Date: 20110809
  Transmission Date: 20111222
  Serious: Yes (Hospitalization)
  Sender: FDA-Public Use
  Company Number: FR-GLAXOSMITHKLINE-B0728706A

PATIENT
  Sex: Female

DRUGS (6)
  1. ZOFRAN [Suspect]
     Indication: PREMEDICATION
     Dosage: 8MG CYCLIC
     Route: 042
     Dates: end: 20110214
  2. FLUOROURACIL [Suspect]
     Indication: CHEMOTHERAPY
     Route: 042
     Dates: start: 20090909, end: 20110214
  3. IRINOTECAN HCL [Suspect]
     Indication: CHEMOTHERAPY
     Dosage: 180MGM2 CYCLIC
     Route: 042
     Dates: start: 20110103, end: 20110214
  4. LEUCOVORIN CALCIUM [Suspect]
     Indication: CHEMOTHERAPY
     Dosage: 200MGM2 CYCLIC
     Route: 042
     Dates: start: 20090909, end: 20110214
  5. BEVACIZUMAB [Suspect]
     Indication: CHEMOTHERAPY
     Dosage: 5MGK CYCLIC
     Route: 042
     Dates: start: 20110103, end: 20110214
  6. EMEND [Suspect]
     Indication: PREMEDICATION
     Dosage: 125MG CYCLIC
     Route: 048
     Dates: end: 20110214

REACTIONS (1)
  - PULMONARY EMBOLISM [None]
